FAERS Safety Report 12371074 (Version 2)
Quarter: 2016Q2

REPORT INFORMATION
  Report Type: Report from Study
  Country: US (occurrence: US)
  Receive Date: 20160516
  Receipt Date: 20160606
  Transmission Date: 20160815
  Serious: Yes (Other)
  Sender: FDA-Public Use
  Company Number: US-AMGEN-USASL2016060779

PATIENT
  Age: 57 Year
  Sex: Female

DRUGS (3)
  1. ASPIRIN                            /00002701/ [Suspect]
     Active Substance: ASPIRIN
     Indication: CARDIAC DISORDER
     Dosage: 325 MG, QD
     Route: 065
  2. ENBREL [Suspect]
     Active Substance: ETANERCEPT
     Dosage: 50 MG, QWK
     Route: 065
  3. ENBREL [Suspect]
     Active Substance: ETANERCEPT
     Indication: RHEUMATOID ARTHRITIS
     Dosage: 50 MG, QWK
     Route: 065
     Dates: start: 20050601

REACTIONS (11)
  - Cardiac disorder [Unknown]
  - Bone loss [Unknown]
  - Injection site pain [Unknown]
  - Mitral valve incompetence [Unknown]
  - Foot deformity [Unknown]
  - Arthralgia [Unknown]
  - Laceration [Unknown]
  - Spinal operation [Unknown]
  - Multiple fractures [Unknown]
  - Pain in extremity [Not Recovered/Not Resolved]
  - Colonoscopy [Unknown]

NARRATIVE: CASE EVENT DATE: 2015
